FAERS Safety Report 6752928-5 (Version None)
Quarter: 2010Q2

REPORT INFORMATION
  Report Type: 
  Country: None (occurrence: None)
  Receive Date: 20100602
  Receipt Date: 20100602
  Transmission Date: 20101027
  Serious: Yes (Hospitalization)
  Sender: FDA-Public Use
  Company Number: None

PATIENT
  Age: 67 Year
  Sex: Female
  Weight: 61.6892 kg

DRUGS (4)
  1. HUMIRA [Suspect]
     Indication: RHEUMATOID ARTHRITIS
     Dosage: 40 MG EVERY 15 DAY SUBCUTANEOUS
     Route: 058
  2. ENBREL [Concomitant]
  3. METHROTREXATE [Concomitant]
  4. FOLIC ACID [Concomitant]

REACTIONS (2)
  - ADENOID CYSTIC CARCINOMA [None]
  - SALIVARY GLAND CANCER [None]
